FAERS Safety Report 4560053-7 (Version None)
Quarter: 2005Q1

REPORT INFORMATION
  Report Type: 
  Country: None (occurrence: None)
  Receive Date: 20050125
  Receipt Date: 20050113
  Transmission Date: 20050727
  Serious: Yes (Death)
  Sender: FDA-Public Use
  Company Number: US-JNJFOC-20050103938

PATIENT
  Sex: Male

DRUGS (16)
  1. INFLIXIMAB [Suspect]
     Indication: RHEUMATOID ARTHRITIS
     Route: 042
     Dates: start: 20010807, end: 20030901
  2. ZOCOR [Concomitant]
  3. ALBUTEROL [Concomitant]
  4. COUMADIN [Concomitant]
  5. AVAPRO [Concomitant]
  6. METHOTREXATE [Concomitant]
  7. PREDNISONE [Concomitant]
  8. FEXOFENADINE [Concomitant]
  9. MULTI-VITAMINS [Concomitant]
  10. MULTI-VITAMINS [Concomitant]
  11. MULTI-VITAMINS [Concomitant]
  12. MULTI-VITAMINS [Concomitant]
  13. MULTI-VITAMINS [Concomitant]
  14. MULTI-VITAMINS [Concomitant]
  15. MULTI-VITAMINS [Concomitant]
  16. MULTI-VITAMINS [Concomitant]

REACTIONS (1)
  - LUNG NEOPLASM MALIGNANT [None]
